FAERS Safety Report 10846531 (Version 1)
Quarter: 2015Q1

REPORT INFORMATION
  Report Type: Report from Study
  Country: US (occurrence: US)
  Receive Date: 20150220
  Receipt Date: 20150220
  Transmission Date: 20150721
  Serious: Yes (Other)
  Sender: FDA-Public Use
  Company Number: US-INTERMUNE, INC.-201502IM009841

PATIENT
  Age: 69 Year
  Sex: Male
  Weight: 68.1 kg

DRUGS (8)
  1. ESBRIET [Suspect]
     Active Substance: PIRFENIDONE
     Route: 048
     Dates: start: 20141212
  2. FLOLAN [Concomitant]
     Active Substance: EPOPROSTENOL SODIUM
  3. ADCIRCA [Concomitant]
     Active Substance: TADALAFIL
  4. ASPIRIN. [Concomitant]
     Active Substance: ASPIRIN
  5. TRACLEER [Concomitant]
     Active Substance: BOSENTAN\BOSENTAN MONOHYDRATE
  6. ESBRIET [Suspect]
     Active Substance: PIRFENIDONE
     Dosage: 2403 MG
     Route: 048
  7. COUMADIN [Suspect]
     Active Substance: WARFARIN SODIUM
  8. REMODULIN [Concomitant]
     Active Substance: TREPROSTINIL

REACTIONS (1)
  - International normalised ratio decreased [Unknown]

NARRATIVE: CASE EVENT DATE: 20141212
